FAERS Safety Report 7768244-9 (Version None)
Quarter: 2011Q3

REPORT INFORMATION
  Report Type: 
  Country: None (occurrence: None)
  Receive Date: 20110919
  Receipt Date: 20110903
  Transmission Date: 20111222
  Serious: Yes (Hospitalization)
  Sender: FDA-Public Use
  Company Number: JPI-P-016961

PATIENT
  Age: 33 Year
  Sex: Female

DRUGS (9)
  1. ACETAMINOPHEN, ASPIRIN, AND CODEINE PHOSPHATE [Concomitant]
  2. XYREM [Suspect]
     Indication: NARCOLEPSY
     Dosage: (2 GM FIRST DOSE/2.5 GM SECOND DOSE), ORAL   (4 GM FIRST DOSE/4.5 GM SECOND DOSE), ORAL
     Route: 048
     Dates: start: 20090824
  3. XYREM [Suspect]
     Indication: NARCOLEPSY
     Dosage: (2 GM FIRST DOSE/2.5 GM SECOND DOSE), ORAL   (4 GM FIRST DOSE/4.5 GM SECOND DOSE), ORAL
     Route: 048
     Dates: start: 20090604, end: 20090101
  4. XYREM [Suspect]
     Indication: NARCOLEPSY
     Dosage: (2 GM FIRST DOSE/2.5 GM SECOND DOSE), ORAL   (4 GM FIRST DOSE/4.5 GM SECOND DOSE), ORAL
     Route: 048
     Dates: start: 20090101, end: 20090101
  5. SUMATRIPTAN SUCCINATE [Concomitant]
  6. ACETAMINOPHEN AND HYDROCODONE BITARTRATE [Concomitant]
  7. UNSPECIFIED DRUGS DEPENDENT (UKNOWN) [Suspect]
  8. IBUPROFEN [Concomitant]
  9. BISMUTH SUBSALICYLATE IN OIL INJ [Concomitant]

REACTIONS (2)
  - DRUG DEPENDENCE [None]
  - DRUG INTERACTION [None]
